FAERS Safety Report 5491739-8 (Version None)
Quarter: 2007Q4

REPORT INFORMATION
  Report Type: 
  Country: None (occurrence: None)
  Receive Date: 20071019
  Receipt Date: 20071019
  Transmission Date: 20080405
  Serious: No
  Sender: FDA-Public Use
  Company Number: None

PATIENT
  Sex: Male
  Weight: 80.7403 kg

DRUGS (1)
  1. TOPROL-XL [Suspect]
     Indication: CORONARY ARTERY DISEASE
     Dosage: 50 MG QD PO
     Route: 048
     Dates: start: 20070925, end: 20071019

REACTIONS (1)
  - DIARRHOEA [None]
